FAERS Safety Report 10369151 (Version 1)
Quarter: 2014Q1

REPORT INFORMATION
  Report Type: Spontaneous
  Country: US (occurrence: None)
  Receive Date: 20140306
  Receipt Date: 20140306
  Transmission Date: 20141002
  Serious: Yes (Other)
  Sender: FDA-Public Use
  Company Number: 163-21880-13091459

PATIENT
  Age: 58 Year
  Sex: Male
  Weight: 59.7 kg

DRUGS (11)
  1. REVLIMID (LENALIDOMIDE) (5 MILLIGRAM, CAPSULES) [Suspect]
     Indication: PLASMA CELL MYELOMA
     Dosage: 5 MG,  21 IN 28 D, PO
     Route: 048
     Dates: start: 201301
  2. INSULIN [Concomitant]
  3. LISINOPRIL [Concomitant]
  4. LOPRESSOR (METOPROLOL TARTRATE) [Concomitant]
  5. ASPIRIN [Concomitant]
  6. LONITEN (MINOXIDIL) [Concomitant]
  7. DEXAMETHASONE [Concomitant]
  8. LIPITOR (ATORVASTATIN) [Concomitant]
  9. GABAPENTIN [Concomitant]
  10. ACYCLOVIR (ACICLOVIR) (ACICLOVIR) [Concomitant]
  11. SYNTHROID (LEVOTHYROXINE SODIUM) [Concomitant]

REACTIONS (1)
  - Renal failure [None]
